FAERS Safety Report 21918761 (Version 9)
Quarter: 2025Q2

REPORT INFORMATION
  Report Type: Spontaneous
  Country: PK (occurrence: PK)
  Receive Date: 20230127
  Receipt Date: 20250609
  Transmission Date: 20250717
  Serious: Yes (Other)
  Sender: AMGEN
  Company Number: PK-PFIZER INC-PV202300013847

PATIENT
  Age: 69 Year
  Sex: Female

DRUGS (15)
  1. ENBREL [Suspect]
     Active Substance: ETANERCEPT
     Indication: Rheumatoid arthritis
     Dosage: 50 MG, WEEKLY
     Route: 058
     Dates: start: 20221020
  2. ENBREL [Suspect]
     Active Substance: ETANERCEPT
     Route: 058
     Dates: start: 202210
  3. HYDROXYCHLOROQUINE SULFATE [Concomitant]
     Active Substance: HYDROXYCHLOROQUINE SULFATE
     Indication: Product used for unknown indication
     Route: 065
  4. FOLIC ACID [Concomitant]
     Active Substance: FOLIC ACID
     Indication: Product used for unknown indication
     Dosage: 5 MG, 1X/DAY AFTER MEAL
     Route: 065
  5. Somno [Concomitant]
     Indication: Product used for unknown indication
     Dosage: 10 MG, ONCE A DAY
     Route: 065
  6. Sunny d [Concomitant]
     Indication: Product used for unknown indication
     Dosage: ONCE A MONTH, AFTER MEAL
     Route: 065
  7. Risek insta [Concomitant]
     Indication: Product used for unknown indication
     Route: 065
  8. Osteocare calcium magnesium vitamin d3 [Concomitant]
     Indication: Product used for unknown indication
     Route: 065
  9. ALLOPURINOL [Concomitant]
     Active Substance: ALLOPURINOL
     Indication: Product used for unknown indication
     Route: 065
  10. PANADOL [Concomitant]
     Active Substance: ACETAMINOPHEN
     Indication: Product used for unknown indication
     Dosage: 500 MG, AFTER MEAL, WHEN REQUIRED
     Route: 065
  11. PANADOL [Concomitant]
     Active Substance: ACETAMINOPHEN
     Route: 065
  12. Cytotrexate [Concomitant]
     Indication: Product used for unknown indication
     Dosage: 10 MG, WEEKLY
     Route: 065
  13. Cara Clot [Concomitant]
  14. Cara Clot [Concomitant]
  15. Xerostom saliva substitute [Concomitant]
     Indication: Product used for unknown indication
     Dosage: APPLY LOCALLY, 3 TIMES A DAY
     Route: 065

REACTIONS (10)
  - Hypersensitivity pneumonitis [Unknown]
  - Lower respiratory tract infection [Unknown]
  - Interstitial lung disease [Unknown]
  - Dyspnoea exertional [Not Recovered/Not Resolved]
  - Productive cough [Not Recovered/Not Resolved]
  - Red blood cell sedimentation rate increased [Unknown]
  - C-reactive protein increased [Unknown]
  - Crepitations [Unknown]
  - Off label use [Unknown]
  - Drug ineffective [Unknown]
